FAERS Safety Report 21595217 (Version 1)
Quarter: 2022Q4

REPORT INFORMATION
  Report Type: Spontaneous
  Country: US (occurrence: US)
  Receive Date: 20221115
  Receipt Date: 20221115
  Transmission Date: 20230112
  Serious: Yes (Other)
  Sender: FDA-Public Use
  Company Number: US-BRISTOL-MYERS SQUIBB COMPANY-2022-136487

PATIENT
  Age: 60 Year
  Sex: Male

DRUGS (1)
  1. REVLIMID [Suspect]
     Active Substance: LENALIDOMIDE
     Indication: Plasma cell myeloma
     Dosage: DOSE : 2.5 MG,  FREQ: ONCE DAILY FOR 21 DAYS AND 7 DAYS OFF.?EXPIRY DATE:  MAR-2025/SEP-2024.
     Route: 048
     Dates: start: 20180507

REACTIONS (1)
  - Internal haemorrhage [Unknown]
